FAERS Safety Report 9393481 (Version 1)
Quarter: 2013Q3

REPORT INFORMATION
  Report Type: Spontaneous
  Country: JP (occurrence: JP)
  Receive Date: 20130710
  Receipt Date: 20130710
  Transmission Date: 20140515
  Serious: Yes (Other)
  Sender: FDA-Public Use
  Company Number: PHHY2013JP070944

PATIENT
  Age: 70 Year
  Sex: Male

DRUGS (2)
  1. CARBOPLATIN SANDOZ [Suspect]
     Indication: CHEMOTHERAPY
  2. PEMETREXED SODIUM HYDRATE [Suspect]
     Indication: CHEMOTHERAPY

REACTIONS (2)
  - Mycobacterium fortuitum infection [Unknown]
  - Infectious pleural effusion [Unknown]
